FAERS Safety Report 9795254 (Version 1)
Quarter: 2014Q1

REPORT INFORMATION
  Report Type: Spontaneous
  Country: US (occurrence: US)
  Receive Date: 20140103
  Receipt Date: 20140103
  Transmission Date: 20141002
  Serious: Yes (Hospitalization)
  Sender: FDA-Public Use
  Company Number: US-JNJFOC-20131215204

PATIENT
  Age: 76 Year
  Sex: Female
  Weight: 68.04 kg

DRUGS (13)
  1. TYLENOL EXTRA-STRENGTH [Suspect]
     Route: 048
  2. TYLENOL EXTRA-STRENGTH [Suspect]
     Indication: PAIN
     Dosage: 2 PILLS
     Route: 048
     Dates: start: 201004
  3. VITAMIN D3 [Concomitant]
     Indication: ROUTINE HEALTH MAINTENANCE
     Route: 065
     Dates: start: 201004
  4. FAMOTIDINE [Concomitant]
     Indication: ANTACID THERAPY
     Route: 065
     Dates: start: 201004
  5. OMEGA-RED KRILL [Concomitant]
     Indication: PRODUCT USED FOR UNKNOWN INDICATION
     Dates: start: 201004
  6. LISINOPRIL [Concomitant]
     Indication: BLOOD PRESSURE
     Dosage: 10 MG. (THEN 5 MG. BEFORE BED)
     Route: 065
  7. METOPROLOL [Concomitant]
     Indication: CARDIAC DISORDER
     Route: 065
     Dates: start: 201004
  8. SIMVASTATIN [Concomitant]
     Indication: BLOOD CHOLESTEROL
     Route: 065
     Dates: start: 201004
  9. ACETAMINOPHEN [Concomitant]
     Indication: PAIN
     Dosage: VERY SELDOM
     Route: 065
     Dates: start: 201004
  10. MULTIVITAMIN + MINERALS [Concomitant]
     Indication: ROUTINE HEALTH MAINTENANCE
     Route: 065
     Dates: start: 201004
  11. VIVELLE-DOT [Concomitant]
     Indication: BLOOD OESTROGEN
     Dates: start: 201004
  12. ASPIRIN [Concomitant]
     Indication: PRODUCT USED FOR UNKNOWN INDICATION
     Route: 065
     Dates: start: 201004
  13. PLAVIX [Concomitant]
     Indication: ANTICOAGULANT THERAPY
     Dates: start: 201004

REACTIONS (3)
  - Liver injury [Recovered/Resolved]
  - Blood pressure abnormal [Recovered/Resolved]
  - Transaminases increased [Recovered/Resolved]
